FAERS Safety Report 22321589 (Version 1)
Quarter: 2023Q2

REPORT INFORMATION
  Report Type: Report from Study
  Country: US (occurrence: US)
  Receive Date: 20230515
  Receipt Date: 20230515
  Transmission Date: 20230722
  Serious: Yes (Hospitalization, Other)
  Sender: FDA-Public Use
  Company Number: US-ABBVIE-4759064

PATIENT
  Sex: Male

DRUGS (5)
  1. VENCLEXTA [Suspect]
     Active Substance: VENETOCLAX
     Indication: Acute myeloid leukaemia
     Dosage: FORM STRENGTH: 100 MG?ONE, 100MG TABLET DAILY FOR 2 WEEKS ON THEN 14 DAYS OFF REPEATS THIS CYCLE
     Route: 048
  2. VENCLEXTA [Suspect]
     Active Substance: VENETOCLAX
     Indication: Acute myeloid leukaemia
     Dosage: DOSE/ FREQUENCY : TAKE 1 TABLET BY MOUTH ON DAY 1 ONCE DAILY THEREAFTER WITH FOOD AND FULL GLASS ...
     Route: 048
  3. VENCLEXTA [Suspect]
     Active Substance: VENETOCLAX
     Indication: Acute myeloid leukaemia
     Dosage: 2 TABLETS ON DAY 2 ONCE DAILY THEREAFTER WITH FOOD AND FULL GLASS OF WATER
     Route: 048
  4. VENCLEXTA [Suspect]
     Active Substance: VENETOCLAX
     Indication: Acute myeloid leukaemia
     Dosage: 4 TABLETS ONCE DAILY THEREAFTER WITH FOOD AND FULL GLASS OF WATER
     Route: 048
  5. VIDAZA [Concomitant]
     Active Substance: AZACITIDINE
     Indication: Product used for unknown indication
     Dosage: FREQUENCY: 5 DAYS EVERY 28 DAYS.

REACTIONS (3)
  - Anal fissure [Recovering/Resolving]
  - Constipation [Not Recovered/Not Resolved]
  - Sepsis [Recovering/Resolving]
